FAERS Safety Report 23093247 (Version 1)
Quarter: 2023Q4

REPORT INFORMATION
  Report Type: Report from Study
  Country: PE (occurrence: PE)
  Receive Date: 20231022
  Receipt Date: 20231022
  Transmission Date: 20240110
  Serious: Yes (Other)
  Sender: FDA-Public Use
  Company Number: PE-002147023-NVSC2023PE034190

PATIENT
  Age: 82 Year
  Sex: Female

DRUGS (2)
  1. KISQALI [Suspect]
     Active Substance: RIBOCICLIB
     Indication: Breast cancer metastatic
     Dosage: 600 MG, QD
     Route: 048
     Dates: start: 20230109
  2. KISQALI [Suspect]
     Active Substance: RIBOCICLIB
     Indication: Breast cancer

REACTIONS (7)
  - Hyperthyroidism [Unknown]
  - Pain [Recovered/Resolved]
  - Agitation [Unknown]
  - Hypertension [Recovering/Resolving]
  - Gait inability [Unknown]
  - Feeling abnormal [Unknown]
  - Urticaria [Unknown]

NARRATIVE: CASE EVENT DATE: 20230215
